FAERS Safety Report 23290398 (Version 2)
Quarter: 2023Q4

REPORT INFORMATION
  Report Type: Spontaneous
  Country: DE (occurrence: DE)
  Receive Date: 20231213
  Receipt Date: 20231221
  Transmission Date: 20240110
  Serious: Yes (Hospitalization, Other)
  Sender: FDA-Public Use
  Company Number: None

PATIENT
  Age: 14 Year

DRUGS (1)
  1. LIRAGLUTIDE [Suspect]
     Active Substance: LIRAGLUTIDE
     Indication: Type 2 diabetes mellitus
     Dosage: 1.6 MG, QD
     Route: 058
     Dates: start: 20230801, end: 20231120

REACTIONS (7)
  - C-reactive protein increased [Recovering/Resolving]
  - Pancreatic disorder [Recovering/Resolving]
  - White blood cell count increased [Recovering/Resolving]
  - Pancreatic abscess [Recovering/Resolving]
  - Blood glucose increased [Recovering/Resolving]
  - Abdominal pain [Recovering/Resolving]
  - Inappropriate schedule of product administration [Unknown]

NARRATIVE: CASE EVENT DATE: 20231120
